FAERS Safety Report 9450999 (Version 1)
Quarter: 2013Q3

REPORT INFORMATION
  Report Type: Spontaneous
  Country: US (occurrence: US)
  Receive Date: 20130809
  Receipt Date: 20130809
  Transmission Date: 20140515
  Serious: Yes (Hospitalization)
  Sender: FDA-Public Use
  Company Number: US-TMC-CABO-13002470

PATIENT
  Age: 66 Year
  Sex: Male

DRUGS (6)
  1. COMETRIQ [Suspect]
     Indication: THYROID CANCER
     Dosage: 140 MG, QD
     Route: 048
     Dates: start: 20130314, end: 20130321
  2. COMETRIQ [Suspect]
     Dosage: 60-80 MG, QD
     Route: 048
     Dates: start: 20130508, end: 20130511
  3. ACTOS [Concomitant]
  4. CRESTOR [Concomitant]
  5. ZYRTEC [Concomitant]
  6. NOVOLOG [Concomitant]

REACTIONS (5)
  - Sepsis [Unknown]
  - Blister [Not Recovered/Not Resolved]
  - Skin ulcer [Unknown]
  - Diarrhoea [Unknown]
  - Flatulence [Unknown]
